FAERS Safety Report 4299265-9 (Version None)
Quarter: 2004Q1

REPORT INFORMATION
  Report Type: 
  Country: None (occurrence: None)
  Receive Date: 20040217
  Receipt Date: 20040109
  Transmission Date: 20041129
  Serious: Yes (Hospitalization)
  Sender: FDA-Public Use
  Company Number: EM2004-0009

PATIENT
  Age: 48 Year
  Sex: Male

DRUGS (7)
  1. MACROLIN [Suspect]
     Indication: HIV INFECTION
     Dosage: 9 MU, SUBCUTAN.
     Route: 058
     Dates: start: 20030602, end: 20030607
  2. MACROLIN [Suspect]
     Indication: HIV INFECTION
     Dosage: 9 MU, SUBCUTAN.
     Route: 058
     Dates: start: 20030303
  3. MACROLIN [Suspect]
     Indication: HIV INFECTION
     Dosage: 9 MU, SUBCUTAN.
     Route: 058
     Dates: start: 20030407
  4. ZIAGEN [Concomitant]
  5. EPIVIR [Concomitant]
  6. KALETRA [Concomitant]
  7. T20 [Concomitant]

REACTIONS (4)
  - ARTHRALGIA [None]
  - CHEST PAIN [None]
  - MYALGIA [None]
  - PYREXIA [None]
